FAERS Safety Report 5657533-X (Version None)
Quarter: 2008Q1

REPORT INFORMATION
  Report Type: 
  Country: None (occurrence: None)
  Receive Date: 20080310
  Receipt Date: 20080228
  Transmission Date: 20080703
  Serious: Yes (Hospitalization)
  Sender: FDA-Public Use
  Company Number: PHHY2008US02386

PATIENT
  Age: 48 Year
  Sex: Male
  Weight: 63.5 kg

DRUGS (4)
  1. MYCOPHENOLIC ACID [Suspect]
     Indication: RENAL TRANSPLANT
     Dosage: 1440 MG/DAY
     Route: 048
     Dates: start: 20080118
  2. PROGRAF [Concomitant]
     Indication: IMMUNOSUPPRESSION
     Dosage: 14 MG
     Dates: start: 20080123, end: 20080128
  3. PROGRAF [Concomitant]
     Dosage: 12 MG
     Dates: start: 20080129, end: 20080222
  4. PROGRAF [Concomitant]
     Dosage: 1 MG
     Dates: start: 20080223

REACTIONS (7)
  - BLADDER DISORDER [None]
  - BLOOD CREATININE INCREASED [None]
  - BLOOD POTASSIUM INCREASED [None]
  - BLOOD UREA INCREASED [None]
  - HYDRONEPHROSIS [None]
  - NEPHROSTOMY TUBE PLACEMENT [None]
  - ULTRASOUND SCAN ABNORMAL [None]
